FAERS Safety Report 7991570-5 (Version None)
Quarter: 2011Q4

REPORT INFORMATION
  Report Type: 
  Country: None (occurrence: None)
  Receive Date: 20111219
  Receipt Date: 20111215
  Transmission Date: 20120403
  Serious: Yes (Hospitalization)
  Sender: FDA-Public Use
  Company Number: FR-ROCHE-1022658

PATIENT
  Sex: Female
  Weight: 56 kg

DRUGS (1)
  1. VEMURAFENIB [Suspect]
     Indication: MALIGNANT MELANOMA STAGE IV
     Route: 048
     Dates: start: 20111130

REACTIONS (4)
  - PYREXIA [None]
  - ABDOMINAL PAIN [None]
  - NECK PAIN [None]
  - LEUKOCYTOSIS [None]
